FAERS Safety Report 12626061 (Version 1)
Quarter: 2016Q3

REPORT INFORMATION
  Report Type: Spontaneous
  Country: FR (occurrence: FR)
  Receive Date: 20160805
  Receipt Date: 20160805
  Transmission Date: 20161109
  Serious: Yes (Hospitalization)
  Sender: FDA-Public Use
  Company Number: FR-TEVA-682016ISR

PATIENT
  Age: 69 Year
  Sex: Male

DRUGS (1)
  1. OXALIPLATINE TEVA 5 MG/ML [Suspect]
     Active Substance: OXALIPLATIN
     Dosage: 170 MILLIGRAM DAILY;
     Route: 041
     Dates: start: 20151211, end: 20160226

REACTIONS (2)
  - Paraesthesia [Not Recovered/Not Resolved]
  - Arrhythmia [Not Recovered/Not Resolved]

NARRATIVE: CASE EVENT DATE: 20160226
